FAERS Safety Report 17802678 (Version 1)
Quarter: 2020Q2

REPORT INFORMATION
  Report Type: Spontaneous
  Country: US (occurrence: US)
  Receive Date: 20200518
  Receipt Date: 20200518
  Transmission Date: 20200714
  Serious: Yes (Death)
  Sender: FDA-Public Use
  Company Number: None

PATIENT
  Age: 69 Year
  Sex: Male
  Weight: 99.7 kg

DRUGS (42)
  1. INSULIN GLARGINE [Concomitant]
     Active Substance: INSULIN GLARGINE
  2. PROPOFOL INFUSION [Concomitant]
     Active Substance: PROPOFOL
  3. SIMVASTATIN. [Concomitant]
     Active Substance: SIMVASTATIN
  4. ENOXAPARIN [Concomitant]
     Active Substance: ENOXAPARIN
  5. FENTANYL. [Concomitant]
     Active Substance: FENTANYL
  6. MAGNESIUM SULFATE. [Concomitant]
     Active Substance: MAGNESIUM SULFATE
  7. METRONIDAZOLE. [Concomitant]
     Active Substance: METRONIDAZOLE
  8. FUROSEMIDE. [Concomitant]
     Active Substance: FUROSEMIDE
  9. MIDAZOLAM. [Concomitant]
     Active Substance: MIDAZOLAM
  10. REGULAR INSULIN INFUSION [Concomitant]
  11. BUMETANIDE. [Concomitant]
     Active Substance: BUMETANIDE
  12. SODIUM PHOSPHATE [Concomitant]
     Active Substance: SODIUM PHOSPHATE
  13. SODIUM BICARBONATE. [Concomitant]
     Active Substance: SODIUM BICARBONATE
  14. FENTANYL INFUSION [Concomitant]
     Active Substance: FENTANYL
  15. PANTOPRAZOLE [Concomitant]
     Active Substance: PANTOPRAZOLE
  16. CALCIUM CHLORIDE. [Concomitant]
     Active Substance: CALCIUM CHLORIDE
  17. CALCIUM GLUCONATE. [Concomitant]
     Active Substance: CALCIUM GLUCONATE
  18. MILK OF MAGNESIA [Concomitant]
     Active Substance: MAGNESIUM HYDROXIDE
  19. MORPHINE [Concomitant]
     Active Substance: MORPHINE
  20. HEPARIN INFUSION [Concomitant]
  21. POTASSIUM PHOSPHATE [Concomitant]
     Active Substance: POTASSIUM PHOSPHATE
  22. POTASSIUM CHLORIDE. [Concomitant]
     Active Substance: POTASSIUM CHLORIDE
  23. HYDROCORTISONE. [Concomitant]
     Active Substance: HYDROCORTISONE
  24. AMLODIPINE [Concomitant]
     Active Substance: AMLODIPINE BESYLATE
  25. ASPIRIN. [Concomitant]
     Active Substance: ASPIRIN
  26. HYDROXYCHLOROQUINE [Concomitant]
     Active Substance: HYDROXYCHLOROQUINE
  27. VANCOMYCIN [Concomitant]
     Active Substance: VANCOMYCIN
  28. SODIUM POLYSTYRENE [Concomitant]
     Active Substance: SODIUM POLYSTYRENE SULFONATE
  29. METHYLPREDNISOLONE. [Concomitant]
     Active Substance: METHYLPREDNISOLONE
  30. KETAMINE INFUSION [Concomitant]
     Active Substance: KETAMINE
  31. PHENYLEPHRINE INFUSION [Concomitant]
  32. TOCILIZUMAB 400MG [Suspect]
     Active Substance: TOCILIZUMAB
     Indication: COVID-19
     Dosage: ?          OTHER ROUTE:IV?
     Route: 042
     Dates: start: 20200427, end: 20200427
  33. NOREPINEPHRINE INFUSION [Concomitant]
  34. LORAZEPAM. [Concomitant]
     Active Substance: LORAZEPAM
  35. EPINEPHRINE INFUSION [Concomitant]
     Active Substance: EPINEPHRINE
  36. METOPROLOL SUCCINATE. [Concomitant]
     Active Substance: METOPROLOL SUCCINATE
  37. ONDANSETRON [Concomitant]
     Active Substance: ONDANSETRON
  38. VASOPRESSIN INFUSION [Concomitant]
  39. AMIODARONE DRIP [Concomitant]
  40. METOPROLOL TARTRATE. [Concomitant]
     Active Substance: METOPROLOL TARTRATE
  41. CEFEPIME [Concomitant]
     Active Substance: CEFEPIME HYDROCHLORIDE
  42. DIGOXIN. [Concomitant]
     Active Substance: DIGOXIN

REACTIONS (2)
  - Pneumatosis intestinalis [None]
  - Leukocytosis [None]

NARRATIVE: CASE EVENT DATE: 20200510
